FAERS Safety Report 19759773 (Version 1)
Quarter: 2021Q3

REPORT INFORMATION
  Report Type: Spontaneous
  Country: US (occurrence: US)
  Receive Date: 20210830
  Receipt Date: 20210830
  Transmission Date: 20211014
  Serious: No
  Sender: FDA-Public Use
  Company Number: US-DRREDDYS-SPO/USA/21/0139007

PATIENT
  Age: 51 Year
  Sex: Female

DRUGS (5)
  1. HABITROL [Suspect]
     Active Substance: NICOTINE
     Indication: CONFIRMED E-CIGARETTE OR VAPING PRODUCT USE ASSOCIATED LUNG INJURY
     Route: 062
     Dates: start: 2020
  2. HABITROL [Suspect]
     Active Substance: NICOTINE
     Route: 062
     Dates: start: 2020
  3. NICODERM CQ [Suspect]
     Active Substance: NICOTINE
     Indication: TOBACCO USER
     Dosage: LAST YEAR
     Route: 062
  4. HABITROL [Suspect]
     Active Substance: NICOTINE
     Indication: TOBACCO USER
     Route: 062
     Dates: start: 2020
  5. NICODERM CQ [Suspect]
     Active Substance: NICOTINE
     Indication: CONFIRMED E-CIGARETTE OR VAPING PRODUCT USE ASSOCIATED LUNG INJURY

REACTIONS (4)
  - Product use issue [Unknown]
  - Incorrect dose administered [Unknown]
  - Product adhesion issue [Unknown]
  - Product use in unapproved indication [Unknown]
